FAERS Safety Report 7368854-7 (Version None)
Quarter: 2011Q1

REPORT INFORMATION
  Report Type: 
  Country: None (occurrence: None)
  Receive Date: 20110323
  Receipt Date: 20101012
  Transmission Date: 20110831
  Serious: Yes (Hospitalization, Other)
  Sender: FDA-Public Use
  Company Number: US-BAYER-201026855NA

PATIENT
  Sex: Female
  Weight: 86.621 kg

DRUGS (15)
  1. YAZ [Suspect]
     Dosage: UNK
     Dates: start: 20050110
  2. DOXYCYCLINE [Concomitant]
     Indication: RESPIRATORY TRACT INFECTION
  3. NAPROXEN [Concomitant]
     Indication: ARTHRITIS
  4. YAZ [Suspect]
     Indication: CONTRACEPTION
     Dosage: UNK UNK, UNK
     Route: 048
     Dates: start: 20080301, end: 20080601
  5. TORADOL [Concomitant]
  6. DEXAMETHASONE [Concomitant]
     Indication: ADRENAL DISORDER
     Dosage: 0.75 MG, QD
     Dates: start: 20080429
  7. UNCODEABLE ^UNCLASSIFIABLE^ [Concomitant]
  8. DICYCLOMINE [Concomitant]
  9. PROMETHEGAN [Concomitant]
  10. DOXYCYCLINE [Concomitant]
     Indication: FREQUENT BOWEL MOVEMENTS
  11. YASMIN [Suspect]
     Indication: PRODUCT USED FOR UNKNOWN INDICATION
     Dosage: UNK UNK, UNK
     Route: 048
     Dates: start: 20050110
  12. UNCODEABLE ^UNCLASSIFIABLE^ [Concomitant]
     Indication: ADRENAL DISORDER
     Dosage: 0.01 MG, QD
     Dates: start: 20080429
  13. DOXYCYCLINE [Concomitant]
     Indication: ABDOMINAL PAIN UPPER
     Dosage: 20 MG, UNK
     Dates: start: 20080530
  14. PROMETHAZINE [Concomitant]
     Indication: MULTIPLE ALLERGIES
     Dosage: UNK
     Dates: start: 20080528
  15. METRONIDAZOLE [Concomitant]

REACTIONS (4)
  - ABDOMINAL PAIN UPPER [None]
  - GALLBLADDER DISORDER [None]
  - PAIN [None]
  - CHOLECYSTITIS CHRONIC [None]
